FAERS Safety Report 12171554 (Version 1)
Quarter: 2016Q1

REPORT INFORMATION
  Report Type: Spontaneous
  Country: None (occurrence: None)
  Receive Date: 20160310
  Receipt Date: 20160310
  Transmission Date: 20160526
  Serious: Yes (Other)
  Sender: FDA-Public Use
  Company Number: None

PATIENT

DRUGS (11)
  1. MORPHINE [Concomitant]
     Active Substance: MORPHINE
  2. BACTRIM [Concomitant]
     Active Substance: SULFAMETHOXAZOLE\TRIMETHOPRIM
  3. ONDANSETRON [Concomitant]
     Active Substance: ONDANSETRON
  4. D5NS KCL [Concomitant]
  5. CHOLINE MAGNESIUM SALICYLATE [Concomitant]
  6. INFUVITE PEDIATRIC [Suspect]
     Active Substance: .ALPHA.-TOCOPHEROL ACETATE\ASCORBIC ACID\BIOTIN\CHOLECALCIFEROL\CYANOCOBALAMIN\DEXPANTHENOL\FOLIC ACID\NIACINAMIDE\PHYTONADIONE\PYRIDOXINE\RIBOFLAVIN\THIAMINE\VITAMIN A
  7. DIPHENHYDRAMINE. [Concomitant]
     Active Substance: DIPHENHYDRAMINE
  8. LORAZEPAM. [Concomitant]
     Active Substance: LORAZEPAM
  9. METRONIDAZOLE. [Concomitant]
     Active Substance: METRONIDAZOLE
  10. ACETAMINOPHEN. [Concomitant]
     Active Substance: ACETAMINOPHEN
  11. OCULAR LUBRICANT [Concomitant]

REACTIONS (10)
  - Cough [None]
  - Grunting [None]
  - Rash generalised [None]
  - Vomiting [None]
  - Tachypnoea [None]
  - Urticaria [None]
  - Tachycardia [None]
  - Use of accessory respiratory muscles [None]
  - Dyspnoea [None]
  - Bowel movement irregularity [None]
